FAERS Safety Report 6412604-5 (Version None)
Quarter: 2009Q4

REPORT INFORMATION
  Report Type: 
  Country: None (occurrence: None)
  Receive Date: 20091023
  Receipt Date: 20091012
  Transmission Date: 20100525
  Serious: Yes (Other)
  Sender: FDA-Public Use
  Company Number: PHEH2009US13559

PATIENT
  Sex: Female

DRUGS (4)
  1. RECLAST [Suspect]
     Dosage: UNK, UNK
     Dates: start: 20080909, end: 20080909
  2. ALPHAGAN P [Concomitant]
     Dosage: UNK, UNK
  3. CALCIUM [Concomitant]
     Dosage: UNK, UNK
  4. ICAPS [Concomitant]
     Dosage: UNK, UNK

REACTIONS (1)
  - OSTEONECROSIS [None]
